FAERS Safety Report 5605759-3 (Version None)
Quarter: 2008Q1

REPORT INFORMATION
  Report Type: 
  Country: None (occurrence: None)
  Receive Date: 20080129
  Receipt Date: 20080116
  Transmission Date: 20080703
  Serious: Yes (Hospitalization)
  Sender: FDA-Public Use
  Company Number: US-ELI_LILLY_AND_COMPANY-US200801003309

PATIENT
  Sex: Female
  Weight: 88.889 kg

DRUGS (15)
  1. BYETTA [Suspect]
     Dosage: 5 UG, 2/D
     Route: 058
     Dates: start: 20071129, end: 20071226
  2. BYETTA [Suspect]
     Dosage: 5 UG, 2/D
     Route: 058
     Dates: start: 20071231
  3. MORPHINE [Concomitant]
     Indication: PAIN
     Dosage: UNK, AS NEEDED
     Dates: start: 20071101
  4. VICODIN [Concomitant]
     Indication: PAIN
     Dosage: UNK, UNK
     Dates: start: 20071101
  5. VICODIN [Concomitant]
     Dates: start: 20071228
  6. PIOGLITAZONE HCL [Concomitant]
     Indication: DIABETES MELLITUS
     Dosage: 15 MG, UNK
     Dates: start: 20071127, end: 20071226
  7. PIOGLITAZONE HCL [Concomitant]
     Dosage: 15 MG, UNK
     Dates: start: 20071231
  8. METFORMIN HYDROCHLORIDE [Concomitant]
     Indication: DIABETES MELLITUS
     Dosage: 850 MG, UNK
     Dates: start: 20071127, end: 20071226
  9. METFORMIN HYDROCHLORIDE [Concomitant]
     Dosage: 850 MG, UNK
     Dates: start: 20071231
  10. LISINOPRIL [Concomitant]
     Indication: PROPHYLAXIS
     Dosage: 5 MG, UNK
     Dates: start: 20070601
  11. VYTORIN [Concomitant]
     Indication: BLOOD CHOLESTEROL
     Dosage: UNK, DAILY (1/D)
     Dates: start: 20050101
  12. LEVOTHYROXINE SODIUM [Concomitant]
     Indication: THYROID DISORDER
     Dosage: 125 UG, DAILY (1/D)
     Dates: start: 19930101
  13. CALCIUM GLUCONATE [Concomitant]
     Indication: MEDICAL DIET
  14. FISH OIL [Concomitant]
     Indication: MEDICAL DIET
  15. MULTI-VITAMIN [Concomitant]
     Indication: MEDICAL DIET

REACTIONS (4)
  - DYSGEUSIA [None]
  - DYSPEPSIA [None]
  - INTERVERTEBRAL DISC PROTRUSION [None]
  - NAUSEA [None]
